FAERS Safety Report 5720762-0 (Version None)
Quarter: 2008Q2

REPORT INFORMATION
  Report Type: 
  Country: None (occurrence: None)
  Receive Date: 20080429
  Receipt Date: 20080422
  Transmission Date: 20081010
  Serious: Yes (Hospitalization)
  Sender: FDA-Public Use
  Company Number: PHHY2008CA04941

PATIENT
  Sex: Male

DRUGS (3)
  1. EXELON [Suspect]
     Route: 062
     Dates: start: 20080222, end: 20080406
  2. EXELON [Suspect]
     Dosage: UNK, UNK
  3. EXELON [Suspect]
     Dates: end: 20080215

REACTIONS (8)
  - CARDIAC FAILURE CONGESTIVE [None]
  - CONFUSIONAL STATE [None]
  - EATING DISORDER SYMPTOM [None]
  - FLUID RETENTION [None]
  - HALLUCINATION [None]
  - MICTURITION DISORDER [None]
  - RENAL FAILURE ACUTE [None]
  - WEIGHT DECREASED [None]
